FAERS Safety Report 16246992 (Version 1)
Quarter: 2019Q2

REPORT INFORMATION
  Report Type: Report from Study
  Country: None (occurrence: US)
  Receive Date: 20190427
  Receipt Date: 20190427
  Transmission Date: 20190711
  Serious: Yes (Other)
  Sender: FDA-Public Use
  Company Number: US-ABBVIE-18K-163-2233525-00

PATIENT
  Age: 31 Year
  Sex: Female

DRUGS (1)
  1. HUMIRA [Suspect]
     Active Substance: ADALIMUMAB
     Indication: HIDRADENITIS
     Route: 058
     Dates: start: 201711

REACTIONS (6)
  - Autoimmune disorder [Not Recovered/Not Resolved]
  - Hidradenitis [Recovering/Resolving]
  - Anxiety [Recovering/Resolving]
  - Weight decreased [Not Recovered/Not Resolved]
  - Depression [Recovering/Resolving]
  - Inflammatory marker decreased [Not Recovered/Not Resolved]

NARRATIVE: CASE EVENT DATE: 201801
